FAERS Safety Report 6449062-0 (Version None)
Quarter: 2009Q4

REPORT INFORMATION
  Report Type: 
  Country: None (occurrence: None)
  Receive Date: 20091120
  Receipt Date: 20091112
  Transmission Date: 20100525
  Serious: Yes (Hospitalization)
  Sender: FDA-Public Use
  Company Number: TW-JNJFOC-20090801326

PATIENT
  Sex: Male
  Weight: 67.3 kg

DRUGS (4)
  1. CNTO 1275 [Suspect]
     Route: 058
  2. CNTO 1275 [Suspect]
     Indication: PSORIASIS
     Route: 058
  3. PLACEBO [Suspect]
     Route: 058
  4. PLACEBO [Suspect]
     Indication: PSORIASIS
     Route: 058

REACTIONS (1)
  - PULMONARY TUBERCULOSIS [None]
